FAERS Safety Report 16019239 (Version 2)
Quarter: 2019Q3

REPORT INFORMATION
  Report Type: Spontaneous
  Country: GB (occurrence: GB)
  Receive Date: 20190228
  Receipt Date: 20190716
  Transmission Date: 20191004
  Serious: Yes (Life-Threatening, Hospitalization, Other)
  Sender: FDA-Public Use
  Company Number: GB-MALLINCKRODT-T201902047

PATIENT
  Age: 12 Year
  Sex: Male

DRUGS (5)
  1. OFIRMEV [Suspect]
     Active Substance: ACETAMINOPHEN
     Dosage: 50 MG, QD
  2. MORPHINE [Suspect]
     Active Substance: MORPHINE
     Indication: PAIN
     Dosage: UNK
     Route: 065
  3. OFIRMEV [Suspect]
     Active Substance: ACETAMINOPHEN
     Indication: PAIN
     Dosage: 53 MG/KG, QD
     Route: 042
  4. OFIRMEV [Suspect]
     Active Substance: ACETAMINOPHEN
     Dosage: 65 MG, QD
  5. DICLOFENAC SODIUM. [Suspect]
     Active Substance: DICLOFENAC SODIUM
     Indication: PAIN
     Dosage: UNK
     Route: 065

REACTIONS (2)
  - Drug ineffective [Recovering/Resolving]
  - Megacolon [Recovering/Resolving]

NARRATIVE: CASE EVENT DATE: 2007
